FAERS Safety Report 7927400-7 (Version None)
Quarter: 2011Q4

REPORT INFORMATION
  Report Type: 
  Country: None (occurrence: None)
  Receive Date: 20111116
  Receipt Date: 20111103
  Transmission Date: 20120403
  Serious: Yes (Other)
  Sender: FDA-Public Use
  Company Number: CIP11002975

PATIENT
  Sex: Female

DRUGS (6)
  1. FOSAMAX [Suspect]
     Indication: OSTEOPOROSIS
     Dosage: DOSAGE / REGIMEN, ORAL
     Route: 048
  2. FOSAMAX [Suspect]
     Indication: OSTEOPOROSIS PROPHYLAXIS
     Dosage: DOSAGE / REGIMEN, ORAL
     Route: 048
  3. ACTONEL [Suspect]
     Indication: OSTEOPOROSIS
     Dosage: DOSAGE / REGIMEN, ORAL
     Route: 048
  4. ACTONEL [Suspect]
     Indication: OSTEOPOROSIS PROPHYLAXIS
     Dosage: DOSAGE / REGIMEN, ORAL
     Route: 048
  5. ALENDRONATE SODIUM [Suspect]
     Indication: OSTEOPOROSIS
     Dosage: DOSAGE / REGIMEN, ORAL
     Route: 048
  6. ALENDRONATE SODIUM [Suspect]
     Indication: OSTEOPOROSIS PROPHYLAXIS
     Dosage: DOSAGE / REGIMEN, ORAL
     Route: 048

REACTIONS (7)
  - OSTEONECROSIS OF JAW [None]
  - BONE DISORDER [None]
  - LOW TURNOVER OSTEOPATHY [None]
  - PAIN [None]
  - PATHOLOGICAL FRACTURE [None]
  - FEMUR FRACTURE [None]
  - STRESS FRACTURE [None]
